FAERS Safety Report 25787665 (Version 1)
Quarter: 2025Q3

REPORT INFORMATION
  Report Type: Spontaneous
  Country: JP (occurrence: JP)
  Receive Date: 20250910
  Receipt Date: 20250910
  Transmission Date: 20251021
  Serious: Yes (Death, Hospitalization)
  Sender: AMGEN
  Company Number: JP-AMGEN-JPNSP2025176582

PATIENT
  Age: 74 Year
  Sex: Female

DRUGS (11)
  1. BEVACIZUMAB [Suspect]
     Active Substance: BEVACIZUMAB
     Indication: Lung adenocarcinoma
     Route: 065
  2. BEVACIZUMAB [Suspect]
     Active Substance: BEVACIZUMAB
     Route: 065
  3. ATEZOLIZUMAB [Suspect]
     Active Substance: ATEZOLIZUMAB
     Indication: Lung adenocarcinoma
     Route: 065
  4. ATEZOLIZUMAB [Suspect]
     Active Substance: ATEZOLIZUMAB
     Route: 065
  5. OSIMERTINIB [Concomitant]
     Active Substance: OSIMERTINIB
  6. CARBOPLATIN [Concomitant]
     Active Substance: CARBOPLATIN
  7. PEMETREXED [Concomitant]
     Active Substance: PEMETREXED
  8. AFATINIB [Concomitant]
     Active Substance: AFATINIB
  9. ERLOTINIB [Concomitant]
     Active Substance: ERLOTINIB
  10. PACLITAXEL [Concomitant]
     Active Substance: PACLITAXEL
  11. SARS-CoV-2 vaccine [Concomitant]

REACTIONS (5)
  - Lung adenocarcinoma [Fatal]
  - Performance status decreased [Unknown]
  - Diaphragmatic paralysis [Unknown]
  - Neuralgic amyotrophy [Recovering/Resolving]
  - Therapy partial responder [Unknown]
